FAERS Safety Report 21498696 (Version 2)
Quarter: 2022Q4

REPORT INFORMATION
  Report Type: Report from Study
  Country: BR (occurrence: BR)
  Receive Date: 20221024
  Receipt Date: 20221115
  Transmission Date: 20230112
  Serious: Yes (Other)
  Sender: FDA-Public Use
  Company Number: BR-NOVARTISPH-NVSC2022BR236152

PATIENT
  Sex: Female

DRUGS (2)
  1. KISQALI [Suspect]
     Active Substance: RIBOCICLIB
     Indication: Product used for unknown indication
     Dosage: UNK
     Route: 065
     Dates: start: 20220902
  2. KISQALI [Suspect]
     Active Substance: RIBOCICLIB
     Dosage: UNK (IN USE)
     Route: 065

REACTIONS (4)
  - Immunodeficiency [Recovered/Resolved]
  - Metastases to bone [Unknown]
  - Breast injury [Unknown]
  - Dry skin [Unknown]
